FAERS Safety Report 6911792-1 (Version None)
Quarter: 2010Q3

REPORT INFORMATION
  Report Type: 
  Country: None (occurrence: None)
  Receive Date: 20100806
  Receipt Date: 20070719
  Transmission Date: 20110219
  Serious: No
  Sender: FDA-Public Use
  Company Number: US-PFIZER INC-2007059821

PATIENT
  Sex: Female
  Weight: 56.7 kg

DRUGS (3)
  1. DETROL LA [Suspect]
     Indication: INCONTINENCE
     Dates: start: 20070713
  2. ALTACE [Concomitant]
  3. PLAVIX [Concomitant]

REACTIONS (1)
  - FEELING ABNORMAL [None]
